FAERS Safety Report 16387306 (Version 2)
Quarter: 2019Q4

REPORT INFORMATION
  Report Type: Report from Study
  Country: US (occurrence: US)
  Receive Date: 20190604
  Receipt Date: 20191113
  Transmission Date: 20200122
  Serious: Yes (Hospitalization)
  Sender: FDA-Public Use
  Company Number: US-ROCHE-2327992

PATIENT
  Sex: Female

DRUGS (1)
  1. OCREVUS [Suspect]
     Active Substance: OCRELIZUMAB
     Indication: RELAPSING-REMITTING MULTIPLE SCLEROSIS
     Dosage: ONGOING : YES?DATE OF TREATMENT : 02/NOV/2018?LAST INFUSION:06/MAY/2019
     Route: 042
     Dates: start: 20180427

REACTIONS (2)
  - Meningitis [Unknown]
  - Malaise [Unknown]
